FAERS Safety Report 8064316-2 (Version None)
Quarter: 2012Q1

REPORT INFORMATION
  Report Type: 
  Country: None (occurrence: None)
  Receive Date: 20120123
  Receipt Date: 20120109
  Transmission Date: 20120608
  Serious: No
  Sender: FDA-Public Use
  Company Number: US-ROXANE LABORATORIES, INC.-2011-RO-01765RO

PATIENT
  Sex: Female

DRUGS (6)
  1. SEROQUEL [Concomitant]
  2. CYMBALTA [Concomitant]
  3. BACLOFEN [Concomitant]
  4. TRILEPTAL [Concomitant]
  5. OXCARBAZEPINE [Suspect]
     Indication: FACIAL PAIN
     Dosage: 1200 MG
     Route: 048
     Dates: start: 20111001, end: 20111128
  6. OXCARBAZEPINE [Suspect]
     Indication: EYE PAIN

REACTIONS (1)
  - THERAPEUTIC RESPONSE UNEXPECTED WITH DRUG SUBSTITUTION [None]
